FAERS Safety Report 22176872 (Version 1)
Quarter: 2023Q2

REPORT INFORMATION
  Report Type: Spontaneous
  Country: AU (occurrence: None)
  Receive Date: 20230405
  Receipt Date: 20230405
  Transmission Date: 20230722
  Serious: Yes (Other)
  Sender: FDA-Public Use
  Company Number: 2023A072983

PATIENT
  Sex: Male

DRUGS (4)
  1. LYNPARZA [Suspect]
     Active Substance: OLAPARIB
     Route: 048
  2. ELIGARD [Suspect]
     Active Substance: LEUPROLIDE ACETATE
  3. XTANDI [Suspect]
     Active Substance: ENZALUTAMIDE
  4. PROLIA [Concomitant]
     Active Substance: DENOSUMAB

REACTIONS (9)
  - Prostate cancer [Unknown]
  - Asthenia [Unknown]
  - Dizziness [Unknown]
  - Fall [Unknown]
  - Fatigue [Unknown]
  - Feeling hot [Unknown]
  - Insomnia [Unknown]
  - Restless legs syndrome [Unknown]
  - Urethral obstruction [Unknown]
